FAERS Safety Report 10311974 (Version 2)
Quarter: 2014Q4

REPORT INFORMATION
  Report Type: Spontaneous
  Country: US (occurrence: US)
  Receive Date: 20140717
  Receipt Date: 20141014
  Transmission Date: 20150528
  Serious: Yes (Other)
  Sender: FDA-Public Use
  Company Number: US-MYLANLABS-2014S1016336

PATIENT
  Age: 45 Year
  Sex: Female

DRUGS (4)
  1. HYDROCODONE [Suspect]
     Active Substance: HYDROCODONE
     Indication: HEAD INJURY
     Route: 065
  2. ESCITALOPRAM [Suspect]
     Active Substance: ESCITALOPRAM OXALATE
     Indication: DEPRESSION
     Dosage: 10 MG, QD
     Route: 065
  3. HYDROMORPHONE [Suspect]
     Active Substance: HYDROMORPHONE
     Route: 065
  4. DIHYDROERGOTAMINE MESILATE [Suspect]
     Active Substance: DIHYDROERGOTAMINE MESYLATE
     Route: 065

REACTIONS (5)
  - Accident [None]
  - Coma [None]
  - Reversible cerebral vasoconstriction syndrome [Not Recovered/Not Resolved]
  - Serotonin syndrome [Unknown]
  - Subarachnoid haemorrhage [Unknown]
